FAERS Safety Report 7759087-0 (Version None)
Quarter: 2011Q3

REPORT INFORMATION
  Report Type: 
  Country: None (occurrence: None)
  Receive Date: 20110919
  Receipt Date: 20110911
  Transmission Date: 20111222
  Serious: Yes (Other)
  Sender: FDA-Public Use
  Company Number: US-SANOFI-AVENTIS-2011SA060071

PATIENT
  Age: 89 Year
  Sex: Female

DRUGS (1)
  1. ALLEGRA [Suspect]
     Indication: MENIERE'S DISEASE
     Route: 048

REACTIONS (2)
  - OFF LABEL USE [None]
  - GALLBLADDER OPERATION [None]
